FAERS Safety Report 9460347 (Version 3)
Quarter: 2013Q4

REPORT INFORMATION
  Report Type: Spontaneous
  Country: US (occurrence: None)
  Receive Date: 20130809
  Receipt Date: 20131011
  Transmission Date: 20140711
  Serious: Yes (Hospitalization, Congenital Anomaly)
  Sender: FDA-Public Use
  Company Number: US-TORRENT-00000637

PATIENT
  Age: 81 Year
  Sex: Female
  Weight: 185.98 kg

DRUGS (17)
  1. CITALOPRAM HYDROBROMIDE [Suspect]
     Indication: ANXIETY
     Dosage: (MORNING AND EVENING)
     Dates: end: 20130801
  2. LEVOTHYROXINE [Concomitant]
  3. METOPROLOL TARTRATE [Concomitant]
  4. ELOQUIS-APIXABAN [Concomitant]
  5. RAMIPRIL [Concomitant]
  6. ALBUTEROL 0.083% NEBULIZER [Concomitant]
  7. LORAZEPAM [Concomitant]
  8. PRO-AIR [Concomitant]
  9. LOVASTATIN [Concomitant]
  10. SPIRIVA HANDIHALER [Concomitant]
  11. SYMBICORT [Concomitant]
  12. HYDROCHLOROTHIAZIDE [Concomitant]
  13. OMEPRAZOLE [Concomitant]
  14. ASPIRIN [Concomitant]
  15. VITAMIN B12 [Concomitant]
  16. COENZYME Q10 [Concomitant]
  17. VITAMIN D3 [Concomitant]

REACTIONS (9)
  - Alopecia [None]
  - Dyspepsia [None]
  - Heart rate irregular [None]
  - Hot flush [None]
  - Flatulence [None]
  - Asthenia [None]
  - Rash [None]
  - Tremor [None]
  - Heart rate increased [None]
